FAERS Safety Report 18507106 (Version 3)
Quarter: 2021Q1

REPORT INFORMATION
  Report Type: Spontaneous
  Country: US (occurrence: US)
  Receive Date: 20201116
  Receipt Date: 20210201
  Transmission Date: 20210419
  Serious: No
  Sender: FDA-Public Use
  Company Number: US-PFIZER INC-2020445809

PATIENT
  Age: 69 Year
  Sex: Male
  Weight: 97.52 kg

DRUGS (1)
  1. FLECTOR [Suspect]
     Active Substance: DICLOFENAC EPOLAMINE
     Indication: BACK PAIN
     Dosage: 1 DF, ONCE DAILY (ONE PATCH APPLIED EVERY 12 HOURS; 12 HOURS ON AND 12 HOURS OFF)

REACTIONS (3)
  - Insomnia [Unknown]
  - Intentional device misuse [Unknown]
  - Drug ineffective [Unknown]
